FAERS Safety Report 8269719-9 (Version None)
Quarter: 2012Q2

REPORT INFORMATION
  Report Type: 
  Country: None (occurrence: None)
  Receive Date: 20120405
  Receipt Date: 20120323
  Transmission Date: 20120825
  Serious: Yes (Other)
  Sender: FDA-Public Use
  Company Number: 2012-029323

PATIENT
  Age: 84 Year
  Sex: Female

DRUGS (4)
  1. VALERIAN (VALERIAN) [Suspect]
     Indication: ANXIETY
     Dosage: MULTIPLE DOSES THROUGHOUT THE DAY, ORAL
     Route: 048
  2. VALERIAN (VALERIAN) [Suspect]
     Indication: NERVOUSNESS
     Dosage: MULTIPLE DOSES THROUGHOUT THE DAY, ORAL
     Route: 048
  3. ALCOHOL (ETHANOL) [Suspect]
     Indication: NERVOUSNESS
     Dosage: ONE TO TWO GLASSES OF WINE, ORAL
     Route: 048
  4. DIPHENHYDRAMINE HCL [Suspect]
     Indication: SLEEP DISORDER
     Dosage: HS, ORAL
     Route: 048

REACTIONS (5)
  - MEDICATION ERROR [None]
  - DEPRESSED LEVEL OF CONSCIOUSNESS [None]
  - DRUG INTERACTION [None]
  - ALCOHOL INTERACTION [None]
  - SEDATION [None]
